FAERS Safety Report 5553891-5 (Version None)
Quarter: 2007Q4

REPORT INFORMATION
  Report Type: 
  Country: None (occurrence: None)
  Receive Date: 20071213
  Receipt Date: 20070717
  Transmission Date: 20080405
  Serious: No
  Sender: FDA-Public Use
  Company Number: US-AMGEN-KDL230148

PATIENT
  Sex: Female

DRUGS (2)
  1. ENBREL [Suspect]
     Indication: PSORIASIS
     Route: 058
     Dates: start: 20070511
  2. CIPRO [Concomitant]

REACTIONS (11)
  - DYSPNOEA [None]
  - FATIGUE [None]
  - FOLLICULITIS [None]
  - IMPETIGO [None]
  - LOCALISED INFECTION [None]
  - MALAISE [None]
  - MORGANELLA INFECTION [None]
  - PAIN [None]
  - PYREXIA [None]
  - STAPHYLOCOCCAL SKIN INFECTION [None]
  - VIRAL UPPER RESPIRATORY TRACT INFECTION [None]
